FAERS Safety Report 9162029 (Version 3)
Quarter: 2013Q3

REPORT INFORMATION
  Report Type: Spontaneous
  Country: FR (occurrence: FR)
  Receive Date: 20130314
  Receipt Date: 20130703
  Transmission Date: 20140515
  Serious: Yes (Other)
  Sender: FDA-Public Use
  Company Number: FR-JNJFOC-20130303933

PATIENT
  Age: 58 Year
  Sex: Female

DRUGS (5)
  1. SIMPONI [Suspect]
     Indication: ANKYLOSING SPONDYLITIS
     Route: 058
     Dates: start: 201211
  2. SIMPONI [Suspect]
     Indication: RHEUMATOID ARTHRITIS
     Route: 058
     Dates: start: 201211
  3. AMAREL [Concomitant]
     Indication: DIABETES MELLITUS
     Route: 065
     Dates: start: 2009
  4. COAPROVEL [Concomitant]
     Indication: HYPERTENSION
     Route: 065
     Dates: start: 2009
  5. DOLIPRANE [Concomitant]
     Indication: PAIN
     Route: 065
     Dates: start: 2000

REACTIONS (3)
  - Diabetes mellitus inadequate control [Recovering/Resolving]
  - Glycosylated haemoglobin increased [Recovering/Resolving]
  - Drug effect decreased [Unknown]
